FAERS Safety Report 11438955 (Version 2)
Quarter: 2015Q3

REPORT INFORMATION
  Report Type: Report from Study
  Country: US (occurrence: US)
  Receive Date: 20150901
  Receipt Date: 20150910
  Transmission Date: 20151125
  Serious: No
  Sender: FDA-Public Use
  Company Number: PHEH2015US016776

PATIENT
  Age: 76 Year
  Sex: Male
  Weight: 123.3 kg

DRUGS (1)
  1. ENTRESTO [Suspect]
     Active Substance: SACUBITRIL\VALSARTAN
     Indication: CARDIAC FAILURE
     Dosage: 100 MG, BID
     Route: 048
     Dates: start: 20150819, end: 20150902

REACTIONS (2)
  - Pruritus generalised [Unknown]
  - Rash [Unknown]

NARRATIVE: CASE EVENT DATE: 20150819
